FAERS Safety Report 16925837 (Version 2)
Quarter: 2019Q4

REPORT INFORMATION
  Report Type: Report from Study
  Country: IT (occurrence: IT)
  Receive Date: 20191016
  Receipt Date: 20191104
  Transmission Date: 20200122
  Serious: Yes (Other)
  Sender: FDA-Public Use
  Company Number: IT-UCBSA-2019019618

PATIENT
  Sex: Female

DRUGS (3)
  1. TOPAMAX [Concomitant]
     Active Substance: TOPIRAMATE
     Indication: EPILEPSY
  2. LACOSAMIDE. [Suspect]
     Active Substance: LACOSAMIDE
     Indication: EPILEPSY
     Dosage: 2X/DAY (BID), 50 MG ONE PILL AND A HALF IN THE MORNING AND ONE PILL AND A HALF IN THE EVENING
  3. TEGRETOL [Concomitant]
     Active Substance: CARBAMAZEPINE
     Indication: EPILEPSY

REACTIONS (4)
  - Off label use [Unknown]
  - Anger [Not Recovered/Not Resolved]
  - Epilepsy [Not Recovered/Not Resolved]
  - Diplopia [Not Recovered/Not Resolved]
